FAERS Safety Report 10005515 (Version 7)
Quarter: 2014Q4

REPORT INFORMATION
  Report Type: Report from Study
  Country: US (occurrence: US)
  Receive Date: 20140313
  Receipt Date: 20141223
  Transmission Date: 20150528
  Serious: Yes (Congenital Anomaly)
  Sender: FDA-Public Use
  Company Number: US-009507513-1403USA004989

PATIENT
  Sex: Female
  Weight: 2.82 kg

DRUGS (4)
  1. ISENTRESS [Suspect]
     Active Substance: RALTEGRAVIR POTASSIUM
     Indication: ANTIRETROVIRAL THERAPY
     Dosage: UNK
     Route: 064
  2. PREZISTA [Suspect]
     Active Substance: DARUNAVIR ETHANOLATE
     Indication: ANTIRETROVIRAL THERAPY
     Dosage: UNK
     Route: 064
     Dates: start: 20131022
  3. NORVIR [Suspect]
     Active Substance: RITONAVIR
     Indication: ANTIRETROVIRAL THERAPY
     Dosage: UNK
     Route: 064
     Dates: start: 20131022
  4. TRUVADA [Suspect]
     Active Substance: EMTRICITABINE\TENOFOVIR DISOPROXIL FUMARATE
     Indication: ANTIRETROVIRAL THERAPY
     Dosage: UNK
     Route: 064

REACTIONS (2)
  - Ankyloglossia congenital [Unknown]
  - Foetal exposure during pregnancy [Recovered/Resolved]
